FAERS Safety Report 7230009-4 (Version None)
Quarter: 2011Q1

REPORT INFORMATION
  Report Type: 
  Country: None (occurrence: None)
  Receive Date: 20110117
  Receipt Date: 20110110
  Transmission Date: 20110831
  Serious: Yes (Death, Hospitalization)
  Sender: FDA-Public Use
  Company Number: BE-BRISTOL-MYERS SQUIBB COMPANY-15094436

PATIENT
  Age: 39 Year
  Sex: Male
  Weight: 63 kg

DRUGS (15)
  1. PEMETREXED DISODIUM [Suspect]
     Indication: HEAD AND NECK CANCER
     Dosage: DAY 1 EVERY 21 DAYS.LAST DOSE RECEIVED ON 28-APR-2010
     Route: 042
     Dates: start: 20100317, end: 20100428
  2. REDOMEX [Concomitant]
  3. DAFALGAN [Concomitant]
  4. TEMESTA [Concomitant]
     Dates: start: 20100310, end: 20100311
  5. TEMGESIC [Concomitant]
     Dates: start: 20100324
  6. CETUXIMAB [Suspect]
     Indication: HEAD AND NECK CANCER
     Dosage: DAY 1 CYCLE 1. ALSO 250MG/M2 WEEKLY IV.LAST DOSE RECEIVED ON 28-APR-2010
     Route: 042
     Dates: start: 20100317, end: 20100428
  7. DEXAMETHASONE [Concomitant]
     Dates: start: 20100316, end: 20100319
  8. FLAGYL [Concomitant]
     Dates: start: 20090709
  9. ZOFRAN [Concomitant]
     Dates: start: 20100428, end: 20100429
  10. SODIUM CHLORIDE [Concomitant]
     Dates: start: 20100428
  11. MULTI-VITAMIN [Concomitant]
  12. PANTOZOL [Concomitant]
     Dates: start: 20050309
  13. CISPLATIN [Suspect]
     Indication: HEAD AND NECK CANCER
     Dosage: DAY 1 EVERY 21 DAYS.LAST DOSE RECEIVED ON 28-APR-2010
     Route: 042
     Dates: start: 20100317, end: 20100428
  14. SOLU-MEDROL [Concomitant]
     Dates: start: 20100407, end: 20100407
  15. EMEND [Concomitant]
     Dates: start: 20100428, end: 20100430

REACTIONS (2)
  - PNEUMONIA [None]
  - DEATH [None]
